FAERS Safety Report 7065920-0 (Version None)
Quarter: 2010Q4

REPORT INFORMATION
  Report Type: 
  Country: None (occurrence: None)
  Receive Date: 20101027
  Receipt Date: 20101019
  Transmission Date: 20110411
  Serious: Yes (Hospitalization, Other)
  Sender: FDA-Public Use
  Company Number: US-MERCK-1006USA01817

PATIENT
  Age: 65 Year
  Sex: Female
  Weight: 87 kg

DRUGS (8)
  1. FOSAMAX [Suspect]
     Indication: OSTEOPOROSIS
     Route: 048
     Dates: start: 20030101, end: 20080601
  2. FOSAMAX [Suspect]
     Indication: OSTEOPENIA
     Route: 048
     Dates: start: 20030101, end: 20080601
  3. ALENDRONATE SODIUM [Suspect]
     Indication: OSTEOPOROSIS
     Route: 048
     Dates: start: 20080201, end: 20080601
  4. PREDNISONE [Suspect]
     Route: 065
  5. ANTACID LIQUID [Suspect]
     Route: 065
  6. [THERAPY UNSPECIFIED] [Concomitant]
     Indication: BLOOD CHOLESTEROL INCREASED
     Route: 065
     Dates: start: 19950101
  7. PRILOSEC [Concomitant]
     Indication: GASTROOESOPHAGEAL REFLUX DISEASE
     Route: 065
     Dates: start: 20030101, end: 20030801
  8. FOLTX [Concomitant]
     Indication: ROUTINE HEALTH MAINTENANCE
     Route: 065
     Dates: start: 20030201

REACTIONS (81)
  - ABDOMINAL DISCOMFORT [None]
  - ABDOMINAL PAIN [None]
  - ABSCESS [None]
  - ACTINIC KERATOSIS [None]
  - ADRENAL INSUFFICIENCY [None]
  - ADVERSE DRUG REACTION [None]
  - ANAEMIA [None]
  - ANAEMIA OF CHRONIC DISEASE [None]
  - ANAEMIA POSTOPERATIVE [None]
  - ANXIETY DISORDER [None]
  - ARTHRALGIA [None]
  - ARTHROPATHY [None]
  - BACK PAIN [None]
  - BLINDNESS [None]
  - BLOOD CREATINE PHOSPHOKINASE INCREASED [None]
  - BLOOD TRIGLYCERIDES ABNORMAL [None]
  - BRONCHITIS CHRONIC [None]
  - BURSITIS [None]
  - CARBUNCLE [None]
  - CAROTID ARTERY OCCLUSION [None]
  - CAROTID ARTERY STENOSIS [None]
  - CERVICAL SPINAL STENOSIS [None]
  - COLITIS [None]
  - CONTUSION [None]
  - DECREASED IMMUNE RESPONSIVENESS [None]
  - DEPRESSION [None]
  - DIARRHOEA [None]
  - DIVERTICULITIS [None]
  - DRUG HYPERSENSITIVITY [None]
  - DYSLIPIDAEMIA [None]
  - DYSTHYMIC DISORDER [None]
  - ESSENTIAL HYPERTENSION [None]
  - EYE IRRITATION [None]
  - FACE INJURY [None]
  - FALL [None]
  - FATIGUE [None]
  - FEMALE GENITAL TRACT FISTULA [None]
  - FEMUR FRACTURE [None]
  - FIBROMYALGIA [None]
  - FURUNCLE [None]
  - GASTROOESOPHAGEAL REFLUX DISEASE [None]
  - GLAUCOMA [None]
  - GOITRE [None]
  - HERPES ZOSTER [None]
  - HIP FRACTURE [None]
  - HYPOAESTHESIA [None]
  - HYPOTHYROIDISM [None]
  - INCREASED APPETITE [None]
  - INTERVERTEBRAL DISC DEGENERATION [None]
  - INTERVERTEBRAL DISC PROTRUSION [None]
  - IRRITABLE BOWEL SYNDROME [None]
  - LABORATORY TEST ABNORMAL [None]
  - LUMBAR RADICULOPATHY [None]
  - LUMBAR SPINAL STENOSIS [None]
  - MALAISE [None]
  - MALIGNANT HYPERTENSION [None]
  - MENISCUS LESION [None]
  - MITRAL VALVE DISEASE MIXED [None]
  - MIXED HYPERLIPIDAEMIA [None]
  - MYALGIA [None]
  - MYOPATHY [None]
  - NECK PAIN [None]
  - NEOPLASM SKIN [None]
  - NEUROPATHY PERIPHERAL [None]
  - OCULAR HYPERTENSION [None]
  - OEDEMA PERIPHERAL [None]
  - OSTEOARTHRITIS [None]
  - OVERDOSE [None]
  - PAIN IN EXTREMITY [None]
  - POLLAKIURIA [None]
  - POLYARTHRITIS [None]
  - POLYMYALGIA RHEUMATICA [None]
  - PYREXIA [None]
  - RETINAL TEAR [None]
  - RHEUMATOID ARTHRITIS [None]
  - ROTATOR CUFF SYNDROME [None]
  - TRANSIENT ISCHAEMIC ATTACK [None]
  - URINARY RETENTION [None]
  - UTERINE DISORDER [None]
  - WEIGHT INCREASED [None]
  - WOUND INFECTION STAPHYLOCOCCAL [None]
